FAERS Safety Report 4932992-6 (Version None)
Quarter: 2006Q1

REPORT INFORMATION
  Report Type: 
  Country: None (occurrence: None)
  Receive Date: 20060301
  Receipt Date: 20060301
  Transmission Date: 20060701
  Serious: Yes (Hospitalization, Other)
  Sender: FDA-Public Use
  Company Number: None

PATIENT
  Sex: Female
  Weight: 53.5 kg

DRUGS (6)
  1. FLUOROURACIL [Suspect]
     Indication: GASTRIC CANCER
     Dosage: 7875 MG
     Dates: start: 20060109, end: 20060205
  2. LISINOPRIL [Concomitant]
  3. MULTIVITAMIN [Concomitant]
  4. PRAVACHOL [Concomitant]
  5. NEXIUM [Concomitant]
  6. TYLENOL (CAPLET) [Concomitant]

REACTIONS (6)
  - COUGH [None]
  - FATIGUE [None]
  - OESOPHAGEAL STENOSIS [None]
  - OESOPHAGITIS [None]
  - RADIATION INJURY [None]
  - VOMITING [None]
